FAERS Safety Report 23225578 (Version 1)
Quarter: 2023Q4

REPORT INFORMATION
  Report Type: Spontaneous
  Country: CA (occurrence: CA)
  Receive Date: 20231124
  Receipt Date: 20231124
  Transmission Date: 20240110
  Serious: Yes (Disabling)
  Sender: FDA-Public Use
  Company Number: CA-SA-SAC20230612000173

PATIENT

DRUGS (3)
  1. HYDROXYCHLOROQUINE [Suspect]
     Active Substance: HYDROXYCHLOROQUINE
     Dosage: UNK TABLET
  2. RITUXIMAB [Concomitant]
     Active Substance: RITUXIMAB
     Indication: Rheumatoid arthritis
     Dosage: 1 G 1 GR DAY 1 AND DAY 15
     Route: 042
  3. RAMIPRIL [Concomitant]
     Active Substance: RAMIPRIL
     Dosage: UNK

REACTIONS (6)
  - Gait disturbance [Unknown]
  - Pain [Unknown]
  - Generalised oedema [Unknown]
  - Joint swelling [Unknown]
  - Foot deformity [Unknown]
  - Motor dysfunction [Unknown]
